FAERS Safety Report 9925515 (Version 1)
Quarter: 2014Q1

REPORT INFORMATION
  Report Type: Spontaneous
  Country: US (occurrence: None)
  Receive Date: 20140224
  Receipt Date: 20140224
  Transmission Date: 20141002
  Serious: Yes (Death)
  Sender: FDA-Public Use
  Company Number: NL01PV14.35162

PATIENT
  Age: 46 Year
  Sex: Female

DRUGS (5)
  1. UNIKNOWN (ZOLPIDEM) TABLET [Suspect]
  2. FENTANYL [Suspect]
  3. CYCLOBENZAPRINE (CYCLOBENZAPRINE) [Suspect]
  4. GABAPENTIN (GABAPENTIN) [Suspect]
  5. DIAZEPAM (DIAZEPAM) [Suspect]

REACTIONS (2)
  - Drug abuse [None]
  - Exposure via ingestion [None]
